FAERS Safety Report 9329368 (Version 1)
Quarter: 2013Q2

REPORT INFORMATION
  Report Type: Spontaneous
  Country: US (occurrence: US)
  Receive Date: 20130604
  Receipt Date: 20130604
  Transmission Date: 20140414
  Serious: No
  Sender: FDA-Public Use
  Company Number: US-009507513-1305USA017392

PATIENT
  Age: 22 Year
  Sex: Female
  Weight: 72.56 kg

DRUGS (3)
  1. IMPLANON [Suspect]
     Indication: CONTRACEPTION
     Dosage: EVERY 3 YEARS 1 ROD
     Route: 059
     Dates: start: 2009
  2. ADVAIR [Concomitant]
  3. ALBUTEROL [Concomitant]

REACTIONS (3)
  - Implant site hypoaesthesia [Unknown]
  - Implant site pain [Unknown]
  - Incorrect drug administration duration [Unknown]
